FAERS Safety Report 10281387 (Version 4)
Quarter: 2014Q4

REPORT INFORMATION
  Report Type: Spontaneous
  Country: US (occurrence: US)
  Receive Date: 20140707
  Receipt Date: 20141107
  Transmission Date: 20150528
  Serious: Yes (Hospitalization, Other)
  Sender: FDA-Public Use
  Company Number: US-009507513-1407USA000932

PATIENT
  Sex: Female

DRUGS (2)
  1. ALENDRONATE SODIUM. [Suspect]
     Active Substance: ALENDRONATE SODIUM
     Indication: OSTEOPOROSIS
     Dosage: 70 MG, UNK
     Dates: start: 20090908, end: 20111010
  2. FOSAMAX [Suspect]
     Active Substance: ALENDRONATE SODIUM
     Indication: OSTEOPOROSIS
     Dosage: 70 MG, UNK
     Route: 048
     Dates: start: 20010326, end: 20050222

REACTIONS (19)
  - Hip fracture [Unknown]
  - Syncope [Unknown]
  - Thrombocytopenia [Unknown]
  - Intramedullary rod insertion [Unknown]
  - Hyperthyroidism [Unknown]
  - Open reduction of fracture [Unknown]
  - Sinus node dysfunction [Unknown]
  - Fatigue [Unknown]
  - Weight increased [Unknown]
  - Sinus bradycardia [Unknown]
  - Femur fracture [Recovered/Resolved]
  - Depression [Not Recovered/Not Resolved]
  - Haemorrhagic anaemia [Unknown]
  - Supraventricular tachycardia [Unknown]
  - Hypertension [Unknown]
  - Vitamin D deficiency [Unknown]
  - Vertigo [Unknown]
  - Hip arthroplasty [Unknown]
  - Dizziness [Unknown]

NARRATIVE: CASE EVENT DATE: 2001
